FAERS Safety Report 4974245-6 (Version None)
Quarter: 2006Q2

REPORT INFORMATION
  Report Type: 
  Country: None (occurrence: None)
  Receive Date: 20060417
  Receipt Date: 20060403
  Transmission Date: 20061013
  Serious: Yes (Hospitalization, Other)
  Sender: FDA-Public Use
  Company Number: US-MERCK-0604USA00882

PATIENT
  Age: 73 Year
  Sex: Female
  Weight: 74 kg

DRUGS (11)
  1. VIOXX [Suspect]
     Indication: POLYARTHRITIS
     Route: 048
     Dates: start: 19991011, end: 20040930
  2. VIOXX [Suspect]
     Indication: POLYMYALGIA RHEUMATICA
     Route: 048
     Dates: start: 19991011, end: 20040930
  3. PREMARIN [Concomitant]
     Route: 048
  4. PLENDIL [Concomitant]
     Route: 048
  5. PRILOSEC [Concomitant]
     Route: 048
  6. LEVOXYL [Concomitant]
     Route: 048
  7. DITROPAN XL [Concomitant]
     Route: 048
  8. ASCORBIC ACID [Concomitant]
     Route: 048
  9. VITAMIN E [Concomitant]
     Route: 048
  10. VITAMINS (UNSPECIFIED) [Concomitant]
     Route: 048
  11. TRIAMCINOLONE [Concomitant]
     Route: 061

REACTIONS (26)
  - ABDOMINAL PAIN [None]
  - BRADYCARDIA [None]
  - BRONCHITIS [None]
  - CHEST PAIN [None]
  - CORONARY ARTERY DISEASE [None]
  - CORONARY ARTERY STENOSIS [None]
  - CYSTOCELE [None]
  - DERMATITIS CONTACT [None]
  - DIVERTICULUM [None]
  - DIZZINESS [None]
  - FLATULENCE [None]
  - FLUSHING [None]
  - HYPERCHOLESTEROLAEMIA [None]
  - HYPERHIDROSIS [None]
  - LUNG INFILTRATION [None]
  - MYOCARDIAL INFARCTION [None]
  - MYOCARDIAL ISCHAEMIA [None]
  - OSTEOPOROSIS [None]
  - PAIN [None]
  - PALPITATIONS [None]
  - RASH ERYTHEMATOUS [None]
  - STASIS DERMATITIS [None]
  - SYSTEMIC LUPUS ERYTHEMATOSUS [None]
  - URINARY INCONTINENCE [None]
  - UTEROVAGINAL PROLAPSE [None]
  - XERODERMA [None]
